FAERS Safety Report 12249358 (Version 1)
Quarter: 2016Q2

REPORT INFORMATION
  Report Type: Spontaneous
  Country: US (occurrence: None)
  Receive Date: 20160407
  Receipt Date: 20160407
  Transmission Date: 20160815
  Serious: Yes (Hospitalization)
  Sender: FDA-Public Use
  Company Number: None

PATIENT
  Age: 51 Year
  Sex: Female
  Weight: 148.5 kg

DRUGS (2)
  1. HYDROCHLOROTHIAZIDE/LISINOPRIL [Suspect]
     Active Substance: HYDROCHLOROTHIAZIDE\LISINOPRIL
     Indication: HYPERTENSION
     Dosage: 25/20 MG EVERY DAY PO
     Route: 048
     Dates: start: 20120323, end: 20160222
  2. AMOXICILLIN/CLAVULANATE [Suspect]
     Active Substance: AMOXICILLIN\CLAVULANATE POTASSIUM
     Indication: CELLULITIS
     Dosage: 500/125 MG TID PO
     Route: 048
     Dates: start: 20160216, end: 20160222

REACTIONS (8)
  - Rash pruritic [None]
  - Diarrhoea [None]
  - Cellulitis [None]
  - Acute kidney injury [None]
  - Hyperkalaemia [None]
  - Condition aggravated [None]
  - Skin ulcer [None]
  - Dialysis [None]

NARRATIVE: CASE EVENT DATE: 20160222
